FAERS Safety Report 7451520-7 (Version None)
Quarter: 2011Q2

REPORT INFORMATION
  Report Type: 
  Country: None (occurrence: None)
  Receive Date: 20110502
  Receipt Date: 20110418
  Transmission Date: 20111010
  Serious: Yes (Other)
  Sender: FDA-Public Use
  Company Number: US-JNJFOC-20110408079

PATIENT
  Age: 5 Month
  Sex: Female
  Weight: 4.54 kg

DRUGS (1)
  1. DESITIN MAXIMUM STRENGTH ORIGINAL PASTE [Suspect]
     Indication: PROPHYLAXIS
     Dosage: ^A DAB^
     Route: 061

REACTIONS (3)
  - CHEMICAL INJURY [None]
  - APPLICATION SITE ERYTHEMA [None]
  - FUNGAL INFECTION [None]
